FAERS Safety Report 10826080 (Version 1)
Quarter: 2015Q1

REPORT INFORMATION
  Report Type: Spontaneous
  Country: FR (occurrence: None)
  Receive Date: 20150213
  Receipt Date: 20150213
  Transmission Date: 20150721
  Serious: Yes (Hospitalization, Disabling, Other)
  Sender: FDA-Public Use
  Company Number: 2013BI080975

PATIENT
  Age: 36 Year
  Sex: Female

DRUGS (7)
  1. TOPALGIC [Concomitant]
     Active Substance: TRAMADOL
  2. LYRICA [Concomitant]
     Active Substance: PREGABALIN
  3. SEROPLEX [Concomitant]
     Active Substance: ESCITALOPRAM OXALATE
  4. AVONEX [Concomitant]
     Active Substance: INTERFERON BETA-1A
  5. TYSABRI [Suspect]
     Active Substance: NATALIZUMAB
     Indication: MULTIPLE SCLEROSIS
     Route: 042
     Dates: start: 20100201, end: 20130719
  6. REBIF [Concomitant]
     Active Substance: INTERFERON BETA-1A
  7. TAMSULOSINE [Concomitant]
     Active Substance: TAMSULOSIN HYDROCHLORIDE

REACTIONS (9)
  - Progressive multifocal leukoencephalopathy [None]
  - Pain [None]
  - Dysaesthesia [None]
  - Dysphagia [None]
  - Depression [None]
  - Immune reconstitution inflammatory syndrome [None]
  - Quadriplegia [None]
  - Urinary tract disorder [None]
  - Ataxia [None]

NARRATIVE: CASE EVENT DATE: 20130501
